FAERS Safety Report 14926712 (Version 1)
Quarter: 2018Q2

REPORT INFORMATION
  Report Type: Other
  Country: FR (occurrence: FR)
  Receive Date: 20180523
  Receipt Date: 20180523
  Transmission Date: 20180711
  Serious: Yes (Other)
  Sender: FDA-Public Use
  Company Number: FR-DENTSPLY-2018SCDP000150

PATIENT
  Age: 34 Year
  Sex: Female

DRUGS (8)
  1. MORPHINE [Suspect]
     Active Substance: MORPHINE
     Indication: ANALGESIC THERAPY
     Dosage: 2 MG, UNK
     Route: 008
  2. PARACETAMOL [Concomitant]
     Active Substance: ACETAMINOPHEN
     Indication: ANALGESIC THERAPY
     Dosage: 4 G, SINGLE
     Route: 048
  3. NEFOPAM [Concomitant]
     Active Substance: NEFOPAM
     Indication: ANALGESIC THERAPY
     Dosage: 160 MG, SINGLE
     Route: 048
  4. LIDOCAINE HYDROCHLORIDE AND EPINEPHRINE BITARTRATE [Suspect]
     Active Substance: EPINEPHRINE BITARTRATE\LIDOCAINE HYDROCHLORIDE
     Indication: EPIDURAL ANALGESIA
     Dosage: 300 MG, INJECTION OF 15ML OF A SOLUTION OF 20 MG/ML
     Route: 008
  5. SUFENTANIL [Suspect]
     Active Substance: SUFENTANIL
     Indication: EPIDURAL ANALGESIA
     Dosage: 5 MICROGRAM, UNK, ONE SLOW AND SPLIT INJECTION OF 20ML OF A SOLUTION OF 0.25 MICROG/ML
     Route: 008
  6. ROPIVACAINE [Suspect]
     Active Substance: ROPIVACAINE
     Indication: EPIDURAL ANALGESIA
     Dosage: 20 MG, UNK, ONE SLOW AND SPLIT INJECTION OF 20ML OF A SOLUTION OF 1 MG/ML
     Route: 008
  7. ENOXAPARIN [Suspect]
     Active Substance: ENOXAPARIN
     Indication: THROMBOSIS PROPHYLAXIS
     Dosage: 40 MG, SINGLE
     Route: 058
  8. KETOPROFENE                        /00321701/ [Suspect]
     Active Substance: KETOPROFEN
     Indication: ANALGESIC THERAPY
     Dosage: 200 MG, SINGLE
     Route: 048

REACTIONS (2)
  - Epidural haemorrhage [Recovered/Resolved]
  - Peripheral nerve injury [Recovered/Resolved]
